FAERS Safety Report 8712935 (Version 2)
Quarter: 2012Q4

REPORT INFORMATION
  Report Type: 
  Country: FR (occurrence: FR)
  Receive Date: 20120808
  Receipt Date: 20120911
  Transmission Date: 20130627
  Serious: Yes (Hospitalization)
  Sender: FDA-Public Use
  Company Number: FR-B.I. PHARMACEUTICALS,INC./RIDGEFIELD-2012-FF-01011FF

PATIENT
  Age: 78 Year
  Sex: Male

DRUGS (5)
  1. PRADAXA [Suspect]
     Indication: ARRHYTHMIA
     Dosage: 220 mg
     Route: 048
     Dates: start: 20120329, end: 20120425
  2. CORDARONE [Concomitant]
     Indication: ARRHYTHMIA
     Dosage: 200 mg
     Route: 048
     Dates: start: 20120330
  3. SPIRIVA [Concomitant]
     Indication: RESPIRATORY FAILURE
     Dosage: 18 mcg
     Route: 055
  4. CELESTENE [Concomitant]
     Indication: HYPERSENSITIVITY
     Dosage: 6 mg
     Route: 048
  5. CELESTENE [Concomitant]
     Dosage: 3 mg
     Route: 048
     Dates: end: 20120413

REACTIONS (3)
  - Erythema [Recovered/Resolved]
  - Pyrexia [Recovered/Resolved]
  - Asthenia [Recovered/Resolved]
